FAERS Safety Report 7910347-X (Version None)
Quarter: 2011Q4

REPORT INFORMATION
  Report Type: 
  Country: None (occurrence: None)
  Receive Date: 20111111
  Receipt Date: 20111108
  Transmission Date: 20120403
  Serious: Yes (Death, Hospitalization)
  Sender: FDA-Public Use
  Company Number: GB-ROCHE-1008100

PATIENT
  Sex: Male

DRUGS (6)
  1. PREDNISOLONE [Concomitant]
     Dates: start: 20100507
  2. ADCAL-D3 [Concomitant]
     Dates: start: 20100218
  3. LUCENTIS [Suspect]
     Indication: PRODUCT USED FOR UNKNOWN INDICATION
     Route: 050
  4. OMEPRAZOLE [Concomitant]
     Dates: start: 20100218
  5. SALMETEROL [Concomitant]
     Dates: start: 20100507
  6. VENTOLIN [Concomitant]
     Dates: start: 20100507

REACTIONS (1)
  - IDIOPATHIC PULMONARY FIBROSIS [None]
